FAERS Safety Report 11444675 (Version 1)
Quarter: 2015Q3

REPORT INFORMATION
  Report Type: Spontaneous
  Country: US (occurrence: None)
  Receive Date: 20150831
  Receipt Date: 20150831
  Transmission Date: 20151125
  Serious: No
  Sender: FDA-Public Use
  Company Number: None

PATIENT
  Age: 48 Year
  Sex: Female
  Weight: 88.45 kg

DRUGS (9)
  1. MULTIVITAMIN WITH IRON [Concomitant]
     Active Substance: IRON\VITAMINS
  2. FISH OIL [Concomitant]
     Active Substance: FISH OIL
  3. AMITIZA [Concomitant]
     Active Substance: LUBIPROSTONE
  4. ESCITALOPRAM (GENERIC FOR LEXAPRO) [Concomitant]
  5. VIVELLE DOT PATCHES, ESTRADIOL TRANSDERMAL SYSTEM [Concomitant]
  6. OXYCARBAZEPINE [Suspect]
     Active Substance: OXCARBAZEPINE
     Indication: TEMPORAL LOBE EPILEPSY
     Route: 048
     Dates: start: 20150826, end: 20150826
  7. NATURE^S BOUNTY BRAND HIGH POTENCY MAGNESIUM [Concomitant]
  8. PREDNISOLONE ACETATE EYE DROPS [Concomitant]
     Active Substance: PREDNISOLONE
  9. ZYRTEC [Concomitant]
     Active Substance: CETIRIZINE HYDROCHLORIDE

REACTIONS (5)
  - Pain [None]
  - Dizziness [None]
  - Paraesthesia [None]
  - Muscle twitching [None]
  - Headache [None]

NARRATIVE: CASE EVENT DATE: 20150826
